FAERS Safety Report 25323316 (Version 1)
Quarter: 2025Q2

REPORT INFORMATION
  Report Type: Spontaneous
  Country: HU (occurrence: HU)
  Receive Date: 20250516
  Receipt Date: 20250516
  Transmission Date: 20250717
  Serious: Yes (Other)
  Sender: ROCHE
  Company Number: HU-ROCHE-10000277631

PATIENT
  Sex: Female

DRUGS (2)
  1. HERCEPTIN [Suspect]
     Active Substance: TRASTUZUMAB
     Indication: Product used for unknown indication
     Route: 065
  2. ENHERTU [Suspect]
     Active Substance: FAM-TRASTUZUMAB DERUXTECAN-NXKI
     Indication: Product used for unknown indication
     Route: 065

REACTIONS (8)
  - Fatigue [Unknown]
  - Bone pain [Unknown]
  - Cardiac disorder [Unknown]
  - Weight increased [Unknown]
  - Inflammation [Unknown]
  - Rheumatoid arthritis [Unknown]
  - Hepatic steatosis [Unknown]
  - Lymphoedema [Unknown]
